FAERS Safety Report 11360676 (Version 1)
Quarter: 2015Q3

REPORT INFORMATION
  Report Type: Spontaneous
  Country: US (occurrence: US)
  Receive Date: 20150810
  Receipt Date: 20150810
  Transmission Date: 20151125
  Serious: No
  Sender: FDA-Public Use
  Company Number: US-SUN PHARMACEUTICAL INDUSTRIES LTD-2014SUN02730

PATIENT

DRUGS (1)
  1. SUMATRIPTAN SUCCINATE INJECTION 6 MG/0.5 ML [Suspect]
     Active Substance: SUMATRIPTAN SUCCINATE
     Indication: PRODUCT USED FOR UNKNOWN INDICATION
     Dosage: UNK
     Route: 065

REACTIONS (4)
  - Injection site pain [Recovered/Resolved]
  - Injection site erythema [None]
  - Urticaria [Recovered/Resolved]
  - Injection site swelling [None]

NARRATIVE: CASE EVENT DATE: 201409
